FAERS Safety Report 9293518 (Version 1)
Quarter: 2013Q2

REPORT INFORMATION
  Report Type: Spontaneous
  Country: US (occurrence: US)
  Receive Date: 20130516
  Receipt Date: 20130516
  Transmission Date: 20140414
  Serious: Yes (Other)
  Sender: FDA-Public Use
  Company Number: US-GLAXOSMITHKLINE-A1023743A

PATIENT
  Age: 64 Year
  Sex: Female

DRUGS (1)
  1. ADVAIR [Suspect]
     Indication: PRODUCT USED FOR UNKNOWN INDICATION
     Route: 055
     Dates: start: 20090706

REACTIONS (5)
  - Road traffic accident [Unknown]
  - Mobility decreased [Unknown]
  - Surgery [Unknown]
  - Movement disorder [Unknown]
  - Drug administration error [Unknown]
